FAERS Safety Report 9225198 (Version 1)
Quarter: 2013Q2

REPORT INFORMATION
  Report Type: Spontaneous
  Country: MX (occurrence: MX)
  Receive Date: 20130411
  Receipt Date: 20130411
  Transmission Date: 20140414
  Serious: Yes (Other)
  Sender: FDA-Public Use
  Company Number: MX-ROCHE-1205950

PATIENT
  Sex: 0

DRUGS (1)
  1. METALYSE [Suspect]
     Indication: ANGINA PECTORIS
     Route: 040

REACTIONS (1)
  - Angina pectoris [Unknown]
